FAERS Safety Report 8306913-2 (Version None)
Quarter: 2012Q2

REPORT INFORMATION
  Report Type: 
  Country: None (occurrence: None)
  Receive Date: 20120424
  Receipt Date: 20120417
  Transmission Date: 20120825
  Serious: Yes (Hospitalization)
  Sender: FDA-Public Use
  Company Number: JP-BAYER-2012-003914

PATIENT
  Age: 77 Year
  Sex: Male

DRUGS (9)
  1. MIGLITOL [Concomitant]
     Dosage: DAILY DOSE 150 MG
     Route: 048
  2. NEXAVAR [Suspect]
     Indication: RENAL CELL CARCINOMA
     Dosage: DAILY DOSE 400 MG
     Route: 048
     Dates: start: 20111201, end: 20111214
  3. NEXAVAR [Suspect]
     Dosage: 200 MG, QD
     Route: 048
     Dates: end: 20120301
  4. JANUVIA [Concomitant]
     Dosage: DAILY DOSE 50 MG
     Route: 048
  5. NEXAVAR [Suspect]
     Dosage: 200 MG, BID
     Route: 048
     Dates: start: 20120118, end: 20120215
  6. ALDACTONE [Concomitant]
     Dosage: DAILY DOSE 12.5 MG
     Route: 048
  7. PERINDOPRIL ERBUMINE [Concomitant]
     Dosage: DAILY DOSE 4 MG
     Route: 048
  8. KREMEZIN [Concomitant]
     Dosage: DAILY DOSE 6 G
     Route: 048
  9. ATELEC [Concomitant]
     Dosage: DAILY DOSE 20 MG
     Route: 048

REACTIONS (2)
  - PLATELET COUNT DECREASED [None]
  - NEPHROTIC SYNDROME [None]
